FAERS Safety Report 25606361 (Version 1)
Quarter: 2025Q3

REPORT INFORMATION
  Report Type: Spontaneous
  Country: US (occurrence: US)
  Receive Date: 20250725
  Receipt Date: 20250725
  Transmission Date: 20251020
  Serious: No
  Sender: RECORDATI
  Company Number: US-RECORDATI RARE DISEASE INC.-2024006518

PATIENT

DRUGS (2)
  1. SILTUXIMAB [Suspect]
     Active Substance: SILTUXIMAB
     Indication: Castleman^s disease
     Dates: start: 202308
  2. SILTUXIMAB [Suspect]
     Active Substance: SILTUXIMAB

REACTIONS (2)
  - Mucosal inflammation [Unknown]
  - Off label use [Recovered/Resolved]
